FAERS Safety Report 16836786 (Version 1)
Quarter: 2019Q3

REPORT INFORMATION
  Report Type: Report from Study
  Country: None (occurrence: RO)
  Receive Date: 20190922
  Receipt Date: 20190922
  Transmission Date: 20191005
  Serious: Yes (Hospitalization, Other)
  Sender: FDA-Public Use
  Company Number: RO-ABBVIE-19K-135-2932554-00

PATIENT
  Age: 69 Year
  Sex: Female

DRUGS (9)
  1. ALGOCALMIN [Concomitant]
     Active Substance: METAMIZOLE SODIUM
     Indication: SPINAL OSTEOARTHRITIS
  2. LEDIPASVIR W/SOFOSBUVIR [Suspect]
     Active Substance: LEDIPASVIR\SOFOSBUVIR
     Indication: HEPATIC CIRRHOSIS
     Dosage: 1 DOSAGE FORM, QD
     Route: 048
     Dates: start: 20190619, end: 20190910
  3. LEDIPASVIR W/SOFOSBUVIR [Suspect]
     Active Substance: LEDIPASVIR\SOFOSBUVIR
     Indication: HEPATITIS C
  4. EUTHYROX [Concomitant]
     Active Substance: LEVOTHYROXINE SODIUM
     Indication: THYROID DISORDER
  5. ALGOCALMIN [Concomitant]
     Active Substance: METAMIZOLE SODIUM
     Indication: BACK PAIN
  6. RIBAVIRIN. [Suspect]
     Active Substance: RIBAVIRIN
     Indication: HEPATIC CIRRHOSIS
  7. SYMBICORT [Concomitant]
     Active Substance: BUDESONIDE\FORMOTEROL FUMARATE DIHYDRATE
     Indication: ASTHMA
  8. INSULIN [Concomitant]
     Active Substance: INSULIN NOS
     Indication: DIABETES MELLITUS
  9. RIBAVIRIN. [Suspect]
     Active Substance: RIBAVIRIN
     Indication: HEPATITIS C
     Dosage: 5 DOSAGE FORM, QD
     Route: 048
     Dates: start: 20190619

REACTIONS (7)
  - Fatigue [Not Recovered/Not Resolved]
  - Abdominal distension [Not Recovered/Not Resolved]
  - Lower respiratory tract infection [Recovered/Resolved]
  - Haemoglobin decreased [Recovered/Resolved]
  - Oedema peripheral [Not Recovered/Not Resolved]
  - Ascites [Recovered/Resolved]
  - Abdominal distension [Recovered/Resolved]

NARRATIVE: CASE EVENT DATE: 20190626
